FAERS Safety Report 16608609 (Version 3)
Quarter: 2019Q3

REPORT INFORMATION
  Report Type: Spontaneous
  Country: US (occurrence: US)
  Receive Date: 20190722
  Receipt Date: 20190918
  Transmission Date: 20191004
  Serious: No
  Sender: FDA-Public Use
  Company Number: US-PFIZER INC-2019199340

PATIENT
  Age: 12 Year
  Sex: Female
  Weight: 31.75 kg

DRUGS (2)
  1. RAPAMUNE [Suspect]
     Active Substance: SIROLIMUS
     Indication: LYMPHATIC DISORDER
     Dosage: 1 MG, 2X/DAY (TAKE 1ML (1 MG) BY MOUTH TWICE DAILY)
     Route: 048
     Dates: start: 2018, end: 20190711
  2. RAPAMUNE [Suspect]
     Active Substance: SIROLIMUS
     Indication: VASCULAR MALFORMATION

REACTIONS (4)
  - Product use issue [Unknown]
  - Product use in unapproved indication [Unknown]
  - Stomatitis [Not Recovered/Not Resolved]
  - Off label use [Unknown]

NARRATIVE: CASE EVENT DATE: 2018
